FAERS Safety Report 8251955-9 (Version None)
Quarter: 2012Q2

REPORT INFORMATION
  Report Type: 
  Country: None (occurrence: None)
  Receive Date: 20120402
  Receipt Date: 20120326
  Transmission Date: 20120825
  Serious: Yes (Other)
  Sender: FDA-Public Use
  Company Number: PHHY2012GB026254

PATIENT
  Sex: Male

DRUGS (7)
  1. RAMIPRIL [Concomitant]
  2. FUROSEMIDE [Concomitant]
  3. BISOPROLOL FUMARATE [Concomitant]
  4. WARFARIN SODIUM [Suspect]
  5. DIGOXIN [Concomitant]
  6. RANITIDINE [Concomitant]
  7. SPIRONOLACTONE [Concomitant]

REACTIONS (5)
  - COUGH [None]
  - OROPHARYNGEAL PAIN [None]
  - RHINORRHOEA [None]
  - SENSORY DISTURBANCE [None]
  - CONTUSION [None]
